FAERS Safety Report 4725185-9 (Version None)
Quarter: 2005Q3

REPORT INFORMATION
  Report Type: 
  Country: None (occurrence: None)
  Receive Date: 20050725
  Receipt Date: 20050715
  Transmission Date: 20060218
  Serious: Yes (Hospitalization, Other)
  Sender: FDA-Public Use
  Company Number: KII-2005-0017539

PATIENT
  Age: 24 Year
  Sex: Female

DRUGS (2)
  1. MORPHINE SULFATE [Suspect]
     Dosage: INTRAVENOUS
     Route: 042
  2. METHYLLENEDIOXYAMPHETAMINE (METHYLLENEDIOXYAMINE) [Suspect]
     Dosage: INTRAVENOUS
     Route: 042

REACTIONS (6)
  - AGITATION [None]
  - BELLIGERENCE [None]
  - INFECTION [None]
  - NAUSEA [None]
  - POLYSUBSTANCE ABUSE [None]
  - PYREXIA [None]
